FAERS Safety Report 23285465 (Version 1)
Quarter: 2023Q4

REPORT INFORMATION
  Report Type: Report from Study
  Country: CA (occurrence: CA)
  Receive Date: 20231211
  Receipt Date: 20231211
  Transmission Date: 20240110
  Serious: Yes (Hospitalization, Other)
  Sender: FDA-Public Use
  Company Number: CA-BEH-2023166184

PATIENT
  Age: 67 Year
  Sex: Male
  Weight: 95.3 kg

DRUGS (2)
  1. HIZENTRA [Suspect]
     Active Substance: HUMAN IMMUNOGLOBULIN G
     Indication: Secondary immunodeficiency
     Dosage: 12 GRAM, QW
     Route: 065
     Dates: start: 20140129
  2. PREDNISONE [Suspect]
     Active Substance: PREDNISONE
     Route: 065

REACTIONS (6)
  - Inflammation [Unknown]
  - Spinal operation [Unknown]
  - Rheumatoid arthritis [Unknown]
  - Weight increased [Unknown]
  - No adverse event [Unknown]
  - Therapy interrupted [Unknown]
